FAERS Safety Report 13189720 (Version 4)
Quarter: 2017Q1

REPORT INFORMATION
  Report Type: Spontaneous
  Country: US (occurrence: US)
  Receive Date: 20170206
  Receipt Date: 20170323
  Transmission Date: 20170428
  Serious: Yes (Life-Threatening, Other)
  Sender: FDA-Public Use
  Company Number: US-BAYER-2017-020827

PATIENT
  Age: 26 Year

DRUGS (1)
  1. CIPRO [Suspect]
     Active Substance: CIPROFLOXACIN HYDROCHLORIDE
     Indication: PRODUCT USED FOR UNKNOWN INDICATION
     Dosage: 500 MG, UNK

REACTIONS (7)
  - Ehlers-Danlos syndrome [None]
  - Product label issue [None]
  - Adverse event [None]
  - Atlantoaxial instability [None]
  - Quality of life decreased [None]
  - Cardiac disorder [None]
  - Tendon rupture [None]
